FAERS Safety Report 10551279 (Version 1)
Quarter: 2014Q4

REPORT INFORMATION
  Report Type: Spontaneous
  Country: US (occurrence: None)
  Receive Date: 20141028
  Receipt Date: 20141028
  Transmission Date: 20150529
  Serious: Yes (Hospitalization)
  Sender: FDA-Public Use
  Company Number: None

PATIENT
  Age: 38 Year
  Sex: Female
  Weight: 63.5 kg

DRUGS (2)
  1. PREDNISONE. [Suspect]
     Active Substance: PREDNISONE
  2. DARK N LOVELY [Suspect]
     Active Substance: COSMETICS
     Dosage: TAKEN BY MOUTH

REACTIONS (3)
  - Application site pruritus [None]
  - Purulence [None]
  - Eye swelling [None]

NARRATIVE: CASE EVENT DATE: 20141027
